FAERS Safety Report 20426721 (Version 1)
Quarter: 2022Q1

REPORT INFORMATION
  Report Type: Report from Study
  Country: US (occurrence: US)
  Receive Date: 20220204
  Receipt Date: 20220204
  Transmission Date: 20220423
  Serious: No
  Sender: FDA-Public Use
  Company Number: US-EXELIXIS-CABO-21045792

PATIENT
  Sex: Female
  Weight: 95.238 kg

DRUGS (26)
  1. COMETRIQ [Suspect]
     Active Substance: CABOZANTINIB S-MALATE
     Indication: Medullary thyroid cancer
     Dosage: UNK
     Dates: start: 20210724
  2. COMETRIQ [Suspect]
     Active Substance: CABOZANTINIB S-MALATE
     Indication: Metastases to bone
     Dosage: 60 MG, QD
     Route: 048
  3. ACETAMINOPHEN AND CODEINE [Concomitant]
     Active Substance: ACETAMINOPHEN\CODEINE PHOSPHATE
  4. CLONIDINE [Concomitant]
     Active Substance: CLONIDINE
  5. DEXAMETHASONE [Concomitant]
     Active Substance: DEXAMETHASONE
  6. DILTIAZEM [Concomitant]
     Active Substance: DILTIAZEM
  7. ECHINACEA [Concomitant]
     Active Substance: ECHINACEA, UNSPECIFIED
  8. ELIQUIS [Concomitant]
     Active Substance: APIXABAN
  9. ESZOPICLONE [Concomitant]
     Active Substance: ESZOPICLONE
  10. LEVETIRACETAM [Concomitant]
     Active Substance: LEVETIRACETAM
  11. Levothyroxine and liothyronine [Concomitant]
  12. LOSARTAN POTASSIUM [Concomitant]
     Active Substance: LOSARTAN POTASSIUM
  13. MONTELUKAST [Concomitant]
     Active Substance: MONTELUKAST SODIUM
  14. NITROFURANTOIN [Concomitant]
     Active Substance: NITROFURANTOIN
  15. ONDANSETRON [Concomitant]
     Active Substance: ONDANSETRON
  16. OXCARBAZEPINE [Concomitant]
     Active Substance: OXCARBAZEPINE
  17. PANTOPRAZOLE [Concomitant]
     Active Substance: PANTOPRAZOLE
  18. POTASSIUM CHLORIDE [Concomitant]
     Active Substance: POTASSIUM CHLORIDE
  19. ROSUVASTATIN [Concomitant]
     Active Substance: ROSUVASTATIN
  20. TRIAMCINOLONE [Concomitant]
     Active Substance: TRIAMCINOLONE
  21. TRILEPTAL [Concomitant]
     Active Substance: OXCARBAZEPINE
  22. UREA [Concomitant]
     Active Substance: UREA
  23. ZINC [Concomitant]
     Active Substance: ZINC
  24. KEPPRA [Concomitant]
     Active Substance: LEVETIRACETAM
     Dosage: UNK
  25. CARDIZEM [Concomitant]
     Active Substance: DILTIAZEM HYDROCHLORIDE
     Dosage: UNK
  26. AFINITOR [Concomitant]
     Active Substance: EVEROLIMUS
     Dosage: UNK

REACTIONS (4)
  - Skin hyperpigmentation [Not Recovered/Not Resolved]
  - Feeding disorder [Not Recovered/Not Resolved]
  - Diarrhoea [Not Recovered/Not Resolved]
  - Weight decreased [Not Recovered/Not Resolved]
